FAERS Safety Report 5914908-9 (Version None)
Quarter: 2008Q4

REPORT INFORMATION
  Report Type: 
  Country: None (occurrence: None)
  Receive Date: 20081010
  Receipt Date: 20081010
  Transmission Date: 20090506
  Serious: Yes (Hospitalization)
  Sender: FDA-Public Use
  Company Number: PHEH2000US00344

PATIENT
  Sex: Female
  Weight: 64.8 kg

DRUGS (12)
  1. MYCOPHENOLIC ACID [Suspect]
     Dosage: 720 MG, BID
     Route: 048
     Dates: start: 19991016, end: 20000108
  2. PREDNISONE [Concomitant]
  3. NEORAL [Concomitant]
  4. GANCICLOVIR [Concomitant]
  5. CLOTRIMAZOLE [Concomitant]
  6. TMP/SULFA (BACTRIM) [Concomitant]
  7. ATENOLOL [Concomitant]
  8. MULTIVITAMIN [Concomitant]
  9. LANSOPRAZOLE [Concomitant]
  10. ESTROGENIC SUBSTANCE [Concomitant]
  11. NIFEREX (POLYSACCHARIDE-IRON COMPLEX) [Concomitant]
  12. POTASSIUM CHLORIDE [Concomitant]

REACTIONS (1)
  - GASTROENTERITIS [None]
